FAERS Safety Report 7302641-0 (Version None)
Quarter: 2011Q1

REPORT INFORMATION
  Report Type: 
  Country: None (occurrence: None)
  Receive Date: 20110218
  Receipt Date: 20110214
  Transmission Date: 20110831
  Serious: Yes (Hospitalization, Other)
  Sender: FDA-Public Use
  Company Number: US-US-EMD SERONO, INC.-231433K09USA

PATIENT
  Sex: Male
  Weight: 88 kg

DRUGS (3)
  1. REBIF [Suspect]
     Indication: MULTIPLE SCLEROSIS
     Route: 058
     Dates: start: 20070629
  2. LIPITOR [Concomitant]
     Indication: BLOOD CHOLESTEROL INCREASED
  3. NEURONTIN [Concomitant]
     Indication: MUSCLE SPASMS
     Dates: start: 20070701

REACTIONS (19)
  - CYSTITIS [None]
  - BUNDLE BRANCH BLOCK RIGHT [None]
  - LOSS OF CONSCIOUSNESS [None]
  - ARTERIAL INJURY [None]
  - TESTICULAR HAEMORRHAGE [None]
  - VENTRICULAR EXTRASYSTOLES [None]
  - PROSTATE INFECTION [None]
  - POST PROCEDURAL HAEMORRHAGE [None]
  - INGUINAL MASS [None]
  - INTESTINAL HAEMATOMA [None]
  - INFECTION [None]
  - HEADACHE [None]
  - VASCULAR PSEUDOANEURYSM RUPTURED [None]
  - SEPSIS [None]
  - ORCHITIS [None]
  - DEEP VEIN THROMBOSIS [None]
  - CORONARY ARTERY STENOSIS [None]
  - ATRIAL FIBRILLATION [None]
  - HEART RATE IRREGULAR [None]
